FAERS Safety Report 6011847-2 (Version None)
Quarter: 2008Q4

REPORT INFORMATION
  Report Type: 
  Country: None (occurrence: None)
  Receive Date: 20081218
  Receipt Date: 20081215
  Transmission Date: 20090506
  Serious: Yes (Death, Other)
  Sender: FDA-Public Use
  Company Number: JP-SANOFI-SYNTHELABO-F01200801896

PATIENT
  Sex: Male
  Weight: 58.8 kg

DRUGS (7)
  1. CARPERITIDE [Concomitant]
     Indication: MYOCARDIAL INFARCTION
     Dosage: 12.5 MG
     Route: 042
     Dates: start: 20080821, end: 20080824
  2. HEPARIN [Concomitant]
     Indication: MYOCARDIAL INFARCTION
     Dosage: 10000 UNIT
     Route: 042
     Dates: start: 20080821, end: 20080823
  3. ASPIRIN [Concomitant]
     Indication: MYOCARDIAL INFARCTION
     Dosage: 100 MG
     Route: 048
  4. CLOPIDOGREL [Suspect]
     Indication: MYOCARDIAL INFARCTION
     Dosage: STARTING DOSE 300 MG
     Route: 048
     Dates: start: 20080821, end: 20080821
  5. CLOPIDOGREL [Suspect]
     Dosage: MAINTENANCE DOSE
     Route: 048
     Dates: start: 20080822, end: 20081027
  6. IMIDAPRIL [Concomitant]
     Indication: MYOCARDIAL INFARCTION
     Dosage: 5 MG
     Route: 048
     Dates: start: 20080825
  7. NICORANDIL [Concomitant]
     Indication: MYOCARDIAL INFARCTION
     Dosage: 4 MG
     Route: 042
     Dates: start: 20080821, end: 20080823

REACTIONS (2)
  - ACUTE MYOCARDIAL INFARCTION [None]
  - THROMBOSIS IN DEVICE [None]
